FAERS Safety Report 12899331 (Version 1)
Quarter: 2016Q4

REPORT INFORMATION
  Report Type: Spontaneous
  Country: US (occurrence: US)
  Receive Date: 20161101
  Receipt Date: 20161101
  Transmission Date: 20170207
  Serious: No
  Sender: FDA-Public Use
  Company Number: US-ABBVIE-16P-163-1673607-00

PATIENT
  Age: 18 Year
  Sex: Male

DRUGS (2)
  1. BIAXIN [Suspect]
     Active Substance: CLARITHROMYCIN
     Route: 048
     Dates: start: 201607
  2. BIAXIN [Suspect]
     Active Substance: CLARITHROMYCIN
     Indication: LYME DISEASE
     Route: 048
     Dates: start: 201606, end: 201607

REACTIONS (3)
  - Aggression [Not Recovered/Not Resolved]
  - Product formulation issue [Unknown]
  - Abnormal behaviour [Not Recovered/Not Resolved]

NARRATIVE: CASE EVENT DATE: 201606
